FAERS Safety Report 6968900-6 (Version None)
Quarter: 2010Q3

REPORT INFORMATION
  Report Type: 
  Country: None (occurrence: None)
  Receive Date: 20100907
  Receipt Date: 20100830
  Transmission Date: 20110219
  Serious: Yes (Other)
  Sender: FDA-Public Use
  Company Number: KR-JNJFOC-20100900298

PATIENT
  Age: 40 Year
  Sex: Male

DRUGS (6)
  1. ULTRACET [Suspect]
     Indication: PAIN MANAGEMENT
     Dosage: 4 TABLETS THREE TIMES A DAY
     Route: 048
  2. ULTRACET [Suspect]
     Dosage: 2 TABLETS THREE TIMES A DAY
     Route: 048
  3. ULTRACET [Suspect]
     Dosage: 2 TABLETS 3 TIMES A DAY
     Route: 048
  4. ULTRACET [Suspect]
     Dosage: 4 TABLETS THREE TIMES A DAY
     Route: 048
  5. TYLENOL ER [Suspect]
     Route: 048
  6. TYLENOL ER [Suspect]
     Indication: PAIN MANAGEMENT
     Dosage: THREE TIMES A DAY
     Route: 048

REACTIONS (4)
  - COLD SWEAT [None]
  - OVERDOSE [None]
  - PAIN [None]
  - WITHDRAWAL SYNDROME [None]
